FAERS Safety Report 18231069 (Version 1)
Quarter: 2020Q3

REPORT INFORMATION
  Report Type: Spontaneous
  Country: JP (occurrence: JP)
  Receive Date: 20200904
  Receipt Date: 20200904
  Transmission Date: 20201103
  Serious: Yes (Other)
  Sender: FDA-Public Use
  Company Number: JP-TEVA-2020-JP-005570J

PATIENT
  Age: 92 Year
  Sex: Male

DRUGS (5)
  1. CONSTAN 0.4MG.TABLETS [Suspect]
     Active Substance: ALPRAZOLAM
     Indication: PRODUCT USED FOR UNKNOWN INDICATION
     Route: 048
  2. CONSTAN 0.4MG.TABLETS [Suspect]
     Active Substance: ALPRAZOLAM
     Route: 048
  3. CONSTAN 0.4MG.TABLETS [Suspect]
     Active Substance: ALPRAZOLAM
     Route: 048
  4. CONSTAN 0.4MG.TABLETS [Suspect]
     Active Substance: ALPRAZOLAM
     Dosage: .8 MILLIGRAM DAILY;
     Route: 048
  5. CONSTAN 0.4MG.TABLETS [Suspect]
     Active Substance: ALPRAZOLAM
     Route: 048

REACTIONS (6)
  - Wrong technique in product usage process [Unknown]
  - Middle insomnia [Unknown]
  - Nocturia [Unknown]
  - Product use issue [Unknown]
  - Dizziness [Unknown]
  - Bladder cancer [Unknown]
